FAERS Safety Report 8855335 (Version 1)
Quarter: 2012Q4

REPORT INFORMATION
  Report Type: 
  Country: US (occurrence: US)
  Receive Date: 20121023
  Receipt Date: 20121023
  Transmission Date: 20130627
  Serious: No
  Sender: FDA-Public Use
  Company Number: US-AMGEN-USASP2012060049

PATIENT
  Age: 52 Year
  Sex: Female
  Weight: 92.97 kg

DRUGS (11)
  1. ENBREL [Suspect]
     Indication: RHEUMATOID ARTHRITIS
     Dosage: 50 mg, qwk
     Route: 058
     Dates: start: 20100901, end: 20110901
  2. CALCITRIOL [Concomitant]
     Dosage: UNK
  3. CITRICAL                           /00751501/ [Concomitant]
     Dosage: UNK
  4. DULERA [Concomitant]
     Dosage: UNK
  5. FOLIC ACID [Concomitant]
     Dosage: UNK
  6. METHOTREXATE [Concomitant]
     Dosage: UNK
  7. OSCAL                              /00514701/ [Concomitant]
     Dosage: UNK
  8. SINGULAIR [Concomitant]
     Dosage: UNK
  9. SYNTHYROID [Concomitant]
     Dosage: UNK
  10. TOPAMAX [Concomitant]
     Dosage: UNK
  11. ZANTAC [Concomitant]
     Dosage: UNK

REACTIONS (1)
  - Bronchitis chronic [Unknown]
